FAERS Safety Report 4979553-0 (Version None)
Quarter: 2006Q1

REPORT INFORMATION
  Report Type: 
  Country: None (occurrence: None)
  Receive Date: 20060223
  Receipt Date: 20050831
  Transmission Date: 20060701
  Serious: No
  Sender: FDA-Public Use
  Company Number: HQWYE276807SEP05

PATIENT
  Age: 74 Year
  Sex: Female
  Weight: 113.05 kg

DRUGS (13)
  1. EFFEXOR [Suspect]
     Indication: ANXIETY
     Dosage: 75 MG 1X PER 1 DAY, ORAL
     Route: 048
     Dates: start: 20050828
  2. EFFEXOR [Suspect]
     Indication: DEPRESSION
     Dosage: 75 MG 1X PER 1 DAY, ORAL
     Route: 048
     Dates: start: 20050828
  3. CAPTOPRIL [Concomitant]
  4. AVANDAMET [Concomitant]
  5. ATENOLOL [Concomitant]
  6. SPIRONOLACTONE [Concomitant]
  7. LASIX [Concomitant]
  8. LIPITOR [Concomitant]
  9. ZANTAC [Concomitant]
  10. PROTONIX [Concomitant]
  11. IRON (IRON) [Concomitant]
  12. ASPIRIN [Concomitant]
  13. KLOR-CON [Concomitant]

REACTIONS (1)
  - DRUG DISPENSING ERROR [None]
